FAERS Safety Report 25284326 (Version 2)
Quarter: 2025Q3

REPORT INFORMATION
  Report Type: Report from Study
  Country: US (occurrence: US)
  Receive Date: 20250508
  Receipt Date: 20250913
  Transmission Date: 20251021
  Serious: Yes (Hospitalization, Other)
  Sender: UCB
  Company Number: US-UCBSA-2025026725

PATIENT
  Age: 38 Year
  Sex: Female

DRUGS (2)
  1. BIMEKIZUMAB [Suspect]
     Active Substance: BIMEKIZUMAB
     Indication: Psoriasis
     Dosage: 320 MILLIGRAM, EV 4 WEEKS
     Dates: start: 20250311, end: 20250312
  2. BIMEKIZUMAB [Suspect]
     Active Substance: BIMEKIZUMAB
     Indication: Psoriatic arthropathy

REACTIONS (4)
  - Oesophageal candidiasis [Recovered/Resolved]
  - Oesophageal disorder [Recovered/Resolved]
  - Ulcer [Recovered/Resolved]
  - Hernia [Recovered/Resolved]

NARRATIVE: CASE EVENT DATE: 20250311
